FAERS Safety Report 23419798 (Version 1)
Quarter: 2024Q1

REPORT INFORMATION
  Report Type: Spontaneous
  Country: JP (occurrence: JP)
  Receive Date: 20240119
  Receipt Date: 20240119
  Transmission Date: 20240409
  Serious: Yes (Hospitalization, Other)
  Sender: FDA-Public Use
  Company Number: JP-TWI PHARMACEUTICAL, INC-2024SCTW000007

PATIENT

DRUGS (3)
  1. TENORMIN [Suspect]
     Active Substance: ATENOLOL
     Indication: Product used for unknown indication
     Dosage: UNK
     Route: 065
  2. AMLODIPINE [Suspect]
     Active Substance: AMLODIPINE BESYLATE
     Indication: Product used for unknown indication
     Dosage: UNK
     Route: 065
  3. ETIZOLAM [Suspect]
     Active Substance: ETIZOLAM
     Indication: Product used for unknown indication
     Dosage: UNK
     Route: 065

REACTIONS (6)
  - Septic shock [Recovering/Resolving]
  - Pneumonia [Recovering/Resolving]
  - Cardiogenic shock [Recovering/Resolving]
  - Acute kidney injury [Recovering/Resolving]
  - Cardiac arrest [Recovering/Resolving]
  - Electrocardiogram J wave [Recovered/Resolved]
